FAERS Safety Report 9568355 (Version 1)
Quarter: 2013Q3

REPORT INFORMATION
  Report Type: Spontaneous
  Country: US (occurrence: US)
  Receive Date: 20130930
  Receipt Date: 20130930
  Transmission Date: 20140515
  Serious: No
  Sender: FDA-Public Use
  Company Number: US-AMGEN-USASP2013057755

PATIENT
  Age: 48 Year
  Sex: Female
  Weight: 109.75 kg

DRUGS (15)
  1. ENBREL [Suspect]
     Indication: RHEUMATOID ARTHRITIS
     Dosage: UNK
     Route: 065
     Dates: start: 2013, end: 2013
  2. ACIPHEX [Concomitant]
     Dosage: UNK
  3. AMBIEN [Concomitant]
     Dosage: UNK
  4. ARAVA [Concomitant]
     Dosage: UNK
  5. CARDIA [Concomitant]
     Dosage: UNK
  6. HCT [Concomitant]
     Dosage: UNK
  7. HUMIRA [Concomitant]
     Dosage: UNK
  8. LEXAPRO [Concomitant]
     Dosage: UNK
  9. PREDNISONE [Concomitant]
     Dosage: UNK
  10. WELLBUTRIN [Concomitant]
     Dosage: UNK
  11. XANAX [Concomitant]
     Dosage: UNK
  12. METFORMIN [Concomitant]
     Dosage: UNK
  13. CALCIUM [Concomitant]
     Dosage: UNK
  14. VITAMIN D                          /00107901/ [Concomitant]
     Dosage: UNK
  15. BIOTIN [Concomitant]
     Dosage: UNK

REACTIONS (1)
  - Influenza like illness [Recovered/Resolved]
